FAERS Safety Report 21831534 (Version 1)
Quarter: 2023Q1

REPORT INFORMATION
  Report Type: Spontaneous
  Country: US (occurrence: US)
  Receive Date: 20230106
  Receipt Date: 20230106
  Transmission Date: 20230417
  Serious: Yes (Other)
  Sender: FDA-Public Use
  Company Number: US-SA-SAC20230106000054

PATIENT
  Sex: Male

DRUGS (1)
  1. ALPROLIX [Suspect]
     Active Substance: EFTRENONACOG ALFA
     Indication: Factor IX deficiency
     Route: 042

REACTIONS (3)
  - Anaphylactic reaction [Not Recovered/Not Resolved]
  - Factor VIII inhibition [Unknown]
  - Factor IX inhibition [Unknown]

NARRATIVE: CASE EVENT DATE: 20230104
